FAERS Safety Report 12530510 (Version 1)
Quarter: 2016Q3

REPORT INFORMATION
  Report Type: Spontaneous
  Country: US (occurrence: US)
  Receive Date: 20160706
  Receipt Date: 20160706
  Transmission Date: 20161109
  Serious: Yes (Hospitalization, Other)
  Sender: FDA-Public Use
  Company Number: US-GLAXOSMITHKLINE-US2016GSK095697

PATIENT
  Age: 70 Year
  Sex: Male

DRUGS (4)
  1. CYCLOSPORINE. [Concomitant]
     Active Substance: CYCLOSPORINE
  2. MYCOPHENOLATE MOFETIL. [Concomitant]
     Active Substance: MYCOPHENOLATE MOFETIL
  3. ACYCLOVIR. [Concomitant]
     Active Substance: ACYCLOVIR
  4. ATOVAQUONE. [Suspect]
     Active Substance: ATOVAQUONE
     Dosage: 1500 MG, TID

REACTIONS (6)
  - Treatment failure [Unknown]
  - Gliosis [Unknown]
  - Toxoplasma serology positive [Unknown]
  - Necrosis [Unknown]
  - Headache [Recovered/Resolved]
  - Leukopenia [Unknown]
